FAERS Safety Report 18418421 (Version 1)
Quarter: 2020Q4

REPORT INFORMATION
  Report Type: Spontaneous
  Country: US (occurrence: US)
  Receive Date: 20201023
  Receipt Date: 20201023
  Transmission Date: 20210114
  Serious: No
  Sender: FDA-Public Use
  Company Number: US-SA-2020SA298981

PATIENT

DRUGS (22)
  1. DUPIXENT [Suspect]
     Active Substance: DUPILUMAB
     Dosage: 600 MG, 1X
     Route: 058
     Dates: start: 20200409, end: 20200409
  2. ATENOLOL. [Concomitant]
     Active Substance: ATENOLOL
     Route: 065
  3. FUROSEMIDE. [Concomitant]
     Active Substance: FUROSEMIDE
     Route: 065
  4. IPRATROPIUM [Concomitant]
     Active Substance: IPRATROPIUM
     Route: 065
  5. METFORMIN [Concomitant]
     Active Substance: METFORMIN HYDROCHLORIDE
     Route: 065
  6. FLUOXETINE [Concomitant]
     Active Substance: FLUOXETINE HYDROCHLORIDE
     Dosage: UNK
     Route: 065
  7. LEVOCETIRIZINE [Concomitant]
     Active Substance: LEVOCETIRIZINE
     Route: 065
  8. LEVOFLOXACIN. [Concomitant]
     Active Substance: LEVOFLOXACIN
  9. IRON [Concomitant]
     Active Substance: IRON
     Route: 065
  10. TRAMADOL. [Concomitant]
     Active Substance: TRAMADOL
     Route: 065
  11. CLOPIDOGREL [Concomitant]
     Active Substance: CLOPIDOGREL BISULFATE
     Dosage: UNK
     Route: 065
  12. FEROSUL [Concomitant]
     Active Substance: FERROUS SULFATE
     Route: 065
  13. GABAPENTIN. [Concomitant]
     Active Substance: GABAPENTIN
     Route: 065
  14. DUPIXENT [Suspect]
     Active Substance: DUPILUMAB
     Dosage: UNK UNK, QOW
     Route: 058
     Dates: start: 202004
  15. LOSARTAN POTASSIUM. [Concomitant]
     Active Substance: LOSARTAN POTASSIUM
     Route: 065
  16. MONTELUKAST [Concomitant]
     Active Substance: MONTELUKAST SODIUM
     Dosage: UNK
     Route: 065
  17. TIZANIDINE. [Concomitant]
     Active Substance: TIZANIDINE
     Route: 065
  18. AZELASTINE. [Concomitant]
     Active Substance: AZELASTINE HYDROCHLORIDE
     Route: 065
  19. CLONAZEPAM. [Concomitant]
     Active Substance: CLONAZEPAM
     Route: 065
  20. TAMSULOSIN [Concomitant]
     Active Substance: TAMSULOSIN
     Route: 065
  21. ALLOPURINOL. [Concomitant]
     Active Substance: ALLOPURINOL
     Dosage: UNK
     Route: 065
  22. OMEPRAZOLE. [Concomitant]
     Active Substance: OMEPRAZOLE
     Route: 065

REACTIONS (1)
  - Sinusitis [Not Recovered/Not Resolved]

NARRATIVE: CASE EVENT DATE: 202009
